FAERS Safety Report 16621165 (Version 1)
Quarter: 2019Q3

REPORT INFORMATION
  Report Type: Spontaneous
  Country: US (occurrence: US)
  Receive Date: 20190610
  Receipt Date: 20190610
  Transmission Date: 20191004
  Serious: Yes (Other)
  Sender: FDA-Public Use
  Company Number: None

PATIENT
  Age: 71 Year
  Sex: Female

DRUGS (10)
  1. WARFARIN [Concomitant]
     Active Substance: WARFARIN
  2. DAILY MVI [Concomitant]
  3. FLUOXETINE [Concomitant]
     Active Substance: FLUOXETINE HYDROCHLORIDE
  4. FERROUS SULFATE. [Concomitant]
     Active Substance: FERROUS SULFATE
  5. ASCORBIC ACID. [Concomitant]
     Active Substance: ASCORBIC ACID
  6. ADEMPAS [Suspect]
     Active Substance: RIOCIGUAT
     Indication: PULMONARY EMBOLISM
     Route: 048
     Dates: start: 201901
  7. DOCUSATE SODIUM. [Concomitant]
     Active Substance: DOCUSATE SODIUM
  8. SPIRONOLACTONE. [Concomitant]
     Active Substance: SPIRONOLACTONE
  9. LEVOTHYROXINE. [Concomitant]
     Active Substance: LEVOTHYROXINE
  10. TYLENOL [Concomitant]
     Active Substance: ACETAMINOPHEN

REACTIONS (1)
  - Pneumonia [None]

NARRATIVE: CASE EVENT DATE: 20190529
